FAERS Safety Report 6170143-3 (Version None)
Quarter: 2009Q2

REPORT INFORMATION
  Report Type: 
  Country: None (occurrence: None)
  Receive Date: 20090424
  Receipt Date: 20090105
  Transmission Date: 20091009
  Serious: No
  Sender: FDA-Public Use
  Company Number: ALL1-2009-00022

PATIENT
  Age: 6 Year
  Sex: Male
  Weight: 15.4 kg

DRUGS (2)
  1. VYVANSE [Suspect]
     Dosage: 1X/DAY:QD, ORAL
     Route: 048
  2. CLARITIN [Concomitant]

REACTIONS (5)
  - ABDOMINAL PAIN UPPER [None]
  - CRYING [None]
  - HEADACHE [None]
  - IRRITABILITY [None]
  - VOMITING [None]
